FAERS Safety Report 6274938-7 (Version None)
Quarter: 2009Q3

REPORT INFORMATION
  Report Type: 
  Country: None (occurrence: None)
  Receive Date: 20090717
  Receipt Date: 20090708
  Transmission Date: 20100115
  Serious: Yes (Other)
  Sender: FDA-Public Use
  Company Number: GXKR2009DE07858

PATIENT
  Sex: Female

DRUGS (9)
  1. PREDNISOLONE [Suspect]
     Indication: HELLP SYNDROME
     Dosage: 50 MG, QD, ORAL; 5MG/DAY LESS (STARTING FROM 50 MG DAILY DOWN TO 25 MG DAILY)
     Route: 048
  2. BETAMETHASONE [Suspect]
     Dosage: 12 MG, BID, INTRAVENOUS; 12 MG, BID; 8 MG DAILY, ORAL
     Route: 042
  3. BETAMETHASONE [Suspect]
     Dosage: 12 MG, BID, INTRAVENOUS; 12 MG, BID; 8 MG DAILY, ORAL
     Route: 042
  4. BETAMETHASONE [Suspect]
     Dosage: 12 MG, BID, INTRAVENOUS; 12 MG, BID; 8 MG DAILY, ORAL
     Route: 042
  5. NIFEDIPINE [Concomitant]
  6. METHYLDOPA [Concomitant]
  7. METHYLDOPA [Concomitant]
  8. HEPARIN [Concomitant]
  9. DIHYDRALAZIN (DIHYDRALAZINE SULFATE) [Concomitant]

REACTIONS (8)
  - ABDOMINAL PAIN [None]
  - CAESAREAN SECTION [None]
  - DRUG EXPOSURE DURING PREGNANCY [None]
  - LABORATORY TEST ABNORMAL [None]
  - NAUSEA [None]
  - PLACENTAL DISORDER [None]
  - PREMATURE LABOUR [None]
  - THERAPEUTIC RESPONSE UNEXPECTED [None]
